FAERS Safety Report 23698890 (Version 1)
Quarter: 2024Q2

REPORT INFORMATION
  Report Type: Spontaneous
  Country: US (occurrence: None)
  Receive Date: 20240402
  Receipt Date: 20240402
  Transmission Date: 20240716
  Serious: No
  Sender: FDA-Public Use
  Company Number: None

PATIENT
  Age: 70 Year
  Sex: Female

DRUGS (1)
  1. BOTOX [Suspect]
     Active Substance: ONABOTULINUMTOXINA
     Indication: Migraine without aura

REACTIONS (6)
  - Myalgia [None]
  - Musculoskeletal pain [None]
  - Back pain [None]
  - Musculoskeletal pain [None]
  - Arthralgia [None]
  - Pain in extremity [None]
